FAERS Safety Report 5429119-3 (Version None)
Quarter: 2007Q3

REPORT INFORMATION
  Report Type: 
  Country: None (occurrence: None)
  Receive Date: 20070824
  Receipt Date: 20070815
  Transmission Date: 20080115
  Serious: Yes (Hospitalization)
  Sender: FDA-Public Use
  Company Number: 2007-163029-NL

PATIENT
  Age: 40 Year
  Sex: Female

DRUGS (2)
  1. CHORIONIC GONADOTROPIN [Suspect]
     Dosage: DF
  2. LUTEINISING HORMONE (HUMAN) [Suspect]
     Dosage: DF

REACTIONS (7)
  - ASTHENIA [None]
  - CAESAREAN SECTION [None]
  - DRUG EXPOSURE DURING PREGNANCY [None]
  - MYOCARDIAL INFARCTION [None]
  - OVARIAN DISORDER [None]
  - PREGNANCY [None]
  - SWELLING [None]
